FAERS Safety Report 20725111 (Version 1)
Quarter: 2022Q2

REPORT INFORMATION
  Report Type: Spontaneous
  Country: US (occurrence: None)
  Receive Date: 20220418
  Receipt Date: 20220418
  Transmission Date: 20220720
  Serious: Yes (Other)
  Sender: FDA-Public Use
  Company Number: None

PATIENT
  Age: 48 Year
  Sex: Female
  Weight: 85.73 kg

DRUGS (2)
  1. PHENTERMINE HYDROCHLORIDE\TOPIRAMATE [Suspect]
     Active Substance: PHENTERMINE HYDROCHLORIDE\TOPIRAMATE
     Indication: Obesity
     Dosage: 8MG DAILY ORAL?
     Route: 048
     Dates: start: 20220316, end: 20220405
  2. Phentermine/Topirimate [Concomitant]
     Dates: start: 20220316, end: 20220405

REACTIONS (1)
  - Hereditary pancreatitis [None]

NARRATIVE: CASE EVENT DATE: 20220405
